FAERS Safety Report 9306190 (Version 1)
Quarter: 2013Q2

REPORT INFORMATION
  Report Type: Spontaneous
  Country: US (occurrence: US)
  Receive Date: 20130523
  Receipt Date: 20130523
  Transmission Date: 20140414
  Serious: No
  Sender: FDA-Public Use
  Company Number: US-TEVA-407039USA

PATIENT
  Age: 61 Year
  Sex: Female
  Weight: 99.88 kg

DRUGS (12)
  1. AZILECT [Suspect]
     Indication: PARKINSON^S DISEASE
     Dates: start: 201209, end: 201304
  2. AZILECT [Suspect]
     Indication: TREMOR
  3. AZILECT [Suspect]
     Indication: FALL
  4. AZILECT [Suspect]
     Indication: GAIT DISTURBANCE
  5. AZILECT [Suspect]
     Indication: ASTHENIA
  6. LANSOPRAZOLE [Concomitant]
     Indication: GASTROOESOPHAGEAL REFLUX DISEASE
     Dosage: 30 MILLIGRAM DAILY;
  7. FLECAINIDE [Concomitant]
     Indication: PALPITATIONS
     Dosage: 400 MILLIGRAM DAILY;
  8. SERTRALINE [Concomitant]
     Indication: OBSESSIVE-COMPULSIVE DISORDER
     Dosage: 50 MILLIGRAM DAILY;
     Route: 048
  9. ATENOLOL [Concomitant]
     Indication: HYPERTENSION
     Dosage: 50 MILLIGRAM DAILY;
     Route: 048
  10. ASPIRIN [Concomitant]
     Indication: CARDIAC DISORDER
     Dosage: 81 MILLIGRAM DAILY;
     Route: 048
  11. VITAMIN D [Concomitant]
     Indication: MEDICAL DIET
  12. SIMVASTATIN [Concomitant]
     Indication: BLOOD CHOLESTEROL
     Dosage: 20 MILLIGRAM DAILY;
     Route: 048

REACTIONS (4)
  - Tardive dyskinesia [Not Recovered/Not Resolved]
  - Dyskinesia [Not Recovered/Not Resolved]
  - Dyskinesia [Not Recovered/Not Resolved]
  - Dyskinesia [Not Recovered/Not Resolved]
